FAERS Safety Report 17649664 (Version 7)
Quarter: 2020Q3

REPORT INFORMATION
  Report Type: Spontaneous
  Country: US (occurrence: US)
  Receive Date: 20200409
  Receipt Date: 20200724
  Transmission Date: 20201102
  Serious: No
  Sender: FDA-Public Use
  Company Number: US-GLAXOSMITHKLINE-US2020AMR061592

PATIENT
  Sex: Female

DRUGS (5)
  1. ZEJULA [Suspect]
     Active Substance: NIRAPARIB
     Dosage: 300 MG, QD
     Route: 065
     Dates: start: 20200428
  2. ZEJULA [Suspect]
     Active Substance: NIRAPARIB
     Indication: FALLOPIAN TUBE CANCER
     Dosage: 300 MG, QD
     Route: 065
     Dates: start: 20200326
  3. ZEJULA [Suspect]
     Active Substance: NIRAPARIB
     Dosage: 300 MG, QD
     Route: 065
     Dates: start: 20200327
  4. ZEJULA [Suspect]
     Active Substance: NIRAPARIB
     Dosage: 200 MG, QD
     Route: 065
  5. ZEJULA [Suspect]
     Active Substance: NIRAPARIB
     Dosage: 300 MG, QD
     Route: 065

REACTIONS (21)
  - Blood count abnormal [Unknown]
  - Platelet count decreased [Unknown]
  - Ill-defined disorder [Unknown]
  - Dry skin [Unknown]
  - Alopecia [Unknown]
  - Dry mouth [Unknown]
  - Feeling hot [Unknown]
  - Haemoglobin decreased [Not Recovered/Not Resolved]
  - Dizziness [Unknown]
  - Contusion [Recovered/Resolved]
  - Fatigue [Not Recovered/Not Resolved]
  - Insomnia [Not Recovered/Not Resolved]
  - Skin discolouration [Unknown]
  - Heart rate increased [Unknown]
  - Asthenia [Unknown]
  - Nail bed disorder [Unknown]
  - Dyspnoea [Unknown]
  - Condition aggravated [Unknown]
  - Taste disorder [Unknown]
  - Carbohydrate antigen 125 increased [Unknown]
  - Volume blood decreased [Unknown]
